FAERS Safety Report 5258346-3 (Version None)
Quarter: 2007Q1

REPORT INFORMATION
  Report Type: 
  Country: None (occurrence: None)
  Receive Date: 20070306
  Receipt Date: 20070306
  Transmission Date: 20070707
  Serious: Yes (Life-Threatening, Other)
  Sender: FDA-Public Use
  Company Number: None

PATIENT
  Age: 42 Year
  Sex: Male
  Weight: 108.8633 kg

DRUGS (4)
  1. LOVASTATIN [Suspect]
     Indication: BLOOD CHOLESTEROL INCREASED
     Dosage: 20 MG ONCE A DAY
     Dates: start: 20021101, end: 20061201
  2. MEVACOR [Concomitant]
  3. LOVASTATIN [Concomitant]
  4. TRIAMCINOLONE [Concomitant]

REACTIONS (7)
  - CONSTIPATION [None]
  - DERMATITIS [None]
  - HEADACHE [None]
  - INSOMNIA [None]
  - MYALGIA [None]
  - RASH [None]
  - VISION BLURRED [None]
